FAERS Safety Report 9769645 (Version 1)
Quarter: 2013Q4

REPORT INFORMATION
  Report Type: Spontaneous
  Country: RO (occurrence: RO)
  Receive Date: 20131218
  Receipt Date: 20131218
  Transmission Date: 20140711
  Serious: Yes (Life-Threatening, Hospitalization, Other)
  Sender: FDA-Public Use
  Company Number: RO-ABBVIE-13P-135-1179335-00

PATIENT
  Age: 48 Year
  Sex: Male
  Weight: 94 kg

DRUGS (1)
  1. HUMIRA [Suspect]
     Indication: ANKYLOSING SPONDYLITIS
     Route: 058
     Dates: start: 20121107, end: 20130721

REACTIONS (12)
  - Asthenia [Unknown]
  - Pulmonary tuberculosis [Recovering/Resolving]
  - Bronchopneumonia [Recovering/Resolving]
  - Sepsis [Unknown]
  - Pyrexia [Unknown]
  - Acute respiratory failure [Unknown]
  - Anaemia [Unknown]
  - Hepatocellular injury [Unknown]
  - Hypoproteinaemia [Unknown]
  - Haemoptysis [Unknown]
  - Pleurisy [Unknown]
  - Renal failure acute [Unknown]
